FAERS Safety Report 9474982 (Version 1)
Quarter: 2013Q3

REPORT INFORMATION
  Report Type: Spontaneous
  Country: US (occurrence: None)
  Receive Date: 20130822
  Receipt Date: 20130822
  Transmission Date: 20140515
  Serious: No
  Sender: FDA-Public Use
  Company Number: None

PATIENT
  Age: 66 Year
  Sex: Female
  Weight: 79.38 kg

DRUGS (1)
  1. METFORMIN [Suspect]
     Indication: TYPE 2 DIABETES MELLITUS
     Dosage: 1,000 MG?TWICE DAILY?TAKEN BY MOUTH?10 YEARS
     Route: 048

REACTIONS (4)
  - Abdominal discomfort [None]
  - Abdominal pain upper [None]
  - Nausea [None]
  - Gastric haemorrhage [None]
